FAERS Safety Report 14226417 (Version 1)
Quarter: 2017Q4

REPORT INFORMATION
  Report Type: Spontaneous
  Country: DE (occurrence: DE)
  Receive Date: 20171127
  Receipt Date: 20171127
  Transmission Date: 20180321
  Serious: Yes (Hospitalization)
  Sender: FDA-Public Use
  Company Number: DE-TEVA-2017-DE-825988

PATIENT
  Age: 33 Year
  Sex: Male

DRUGS (4)
  1. QUETIAPIN [Suspect]
     Active Substance: QUETIAPINE
     Route: 048
     Dates: start: 20170105, end: 20170109
  2. QUETIAPIN [Suspect]
     Active Substance: QUETIAPINE
     Route: 048
     Dates: end: 20170101
  3. SERTRALINE [Concomitant]
     Active Substance: SERTRALINE HYDROCHLORIDE
     Route: 048
     Dates: start: 20170102, end: 20170109
  4. QUETIAPIN [Suspect]
     Active Substance: QUETIAPINE
     Route: 048
     Dates: start: 20170102, end: 20170104

REACTIONS (6)
  - Hyperhidrosis [Recovered/Resolved]
  - Drug withdrawal syndrome [Recovered/Resolved]
  - Fluid overload [Recovered/Resolved]
  - Feeling jittery [Recovered/Resolved]
  - Weight decreased [Unknown]
  - Feeling cold [Recovered/Resolved]

NARRATIVE: CASE EVENT DATE: 201701
